FAERS Safety Report 4476704-1 (Version None)
Quarter: 2004Q4

REPORT INFORMATION
  Report Type: 
  Country: None (occurrence: None)
  Receive Date: 20041013
  Receipt Date: 20041001
  Transmission Date: 20050328
  Serious: Yes (Other)
  Sender: FDA-Public Use
  Company Number: 163-20785-04100127

PATIENT

DRUGS (1)
  1. THALOMID [Suspect]
     Indication: CHRONIC LYMPHOCYTIC LEUKAEMIA RECURRENT
     Dosage: 200 MG/D PO D 1-14, INCR. 200 MG Q2WK TO 1000 MG
     Dates: start: 20020117

REACTIONS (22)
  - ABDOMINAL PAIN [None]
  - ASTHENIA [None]
  - BONE PAIN [None]
  - CONJUNCTIVITIS [None]
  - CONSTIPATION [None]
  - DYSPNOEA [None]
  - FATIGUE [None]
  - HAEMOGLOBIN DECREASED [None]
  - HEADACHE [None]
  - HYPERKALAEMIA [None]
  - INFECTION [None]
  - INSOMNIA [None]
  - LETHARGY [None]
  - MALAISE [None]
  - OEDEMA [None]
  - PERIPHERAL MOTOR NEUROPATHY [None]
  - PETECHIAE [None]
  - PLATELET COUNT DECREASED [None]
  - PRURITUS [None]
  - PURPURA [None]
  - TUMOUR FLARE [None]
  - WEIGHT INCREASED [None]
